FAERS Safety Report 4313970-7 (Version None)
Quarter: 2004Q1

REPORT INFORMATION
  Report Type: 
  Country: None (occurrence: None)
  Receive Date: 20040305
  Receipt Date: 20040226
  Transmission Date: 20041129
  Serious: Yes (Disabling)
  Sender: FDA-Public Use
  Company Number: 2004SE01160

PATIENT
  Age: 75 Year
  Sex: Male
  Weight: 54 kg

DRUGS (5)
  1. BLOPRESS [Suspect]
     Indication: HYPERTENSION
     Dosage: 4 MG QD PO
     Route: 048
     Dates: start: 20040110, end: 20040114
  2. BUFFERIN [Suspect]
     Indication: MYOCARDIAL INFARCTION
     Dosage: 81 MG DAILY PO
     Route: 048
     Dates: start: 20031126, end: 20040121
  3. AMULODIN [Suspect]
     Dosage: 5 MG DAILY PO
     Route: 048
     Dates: start: 20031126, end: 20040121
  4. SIGMART [Suspect]
     Indication: ANGINA UNSTABLE
     Dosage: 15 MG DAILY PO
     Route: 048
     Dates: start: 20031126, end: 20040121
  5. NU LOTAN [Suspect]
     Dosage: 25 MG DAILY PO
     Route: 048
     Dates: start: 20031218, end: 20040109

REACTIONS (2)
  - EOSINOPHIL COUNT INCREASED [None]
  - RASH [None]
